FAERS Safety Report 6160173-X (Version None)
Quarter: 2009Q2

REPORT INFORMATION
  Report Type: 
  Country: None (occurrence: None)
  Receive Date: 20090420
  Receipt Date: 20090410
  Transmission Date: 20091009
  Serious: Yes (Hospitalization)
  Sender: FDA-Public Use
  Company Number: A0779249A

PATIENT
  Age: 58 Year
  Sex: Female
  Weight: 76.4 kg

DRUGS (18)
  1. AVANDIA [Suspect]
     Indication: DIABETES MELLITUS
     Dosage: 8MG PER DAY
     Route: 048
     Dates: start: 20020228, end: 20070901
  2. METFORMIN HCL [Concomitant]
  3. PRANDIN [Concomitant]
  4. GLYBURIDE [Concomitant]
  5. GLUCOTROL [Concomitant]
  6. BYETTA [Concomitant]
  7. ATENOLOL [Concomitant]
  8. METOPROLOL SUCCINATE [Concomitant]
  9. ZOCOR [Concomitant]
  10. LIPITOR [Concomitant]
  11. ZETIA [Concomitant]
  12. VYTORIN [Concomitant]
  13. CRESTOR [Concomitant]
  14. NORVASC [Concomitant]
  15. FOSINOPRIL SODIUM [Concomitant]
  16. QUININE SULFATE [Concomitant]
  17. ALTACE [Concomitant]
  18. NAPROXEN [Concomitant]

REACTIONS (3)
  - CORONARY ARTERY DISEASE [None]
  - MYOCARDIAL INFARCTION [None]
  - THROMBOSIS [None]
